FAERS Safety Report 21131062 (Version 1)
Quarter: 2022Q3

REPORT INFORMATION
  Report Type: Spontaneous
  Country: JP (occurrence: JP)
  Receive Date: 20220726
  Receipt Date: 20220726
  Transmission Date: 20221027
  Serious: Yes (Other)
  Sender: FDA-Public Use
  Company Number: JP-ABBVIE-22K-087-4480957-00

PATIENT
  Age: 55 Year
  Sex: Female

DRUGS (7)
  1. VENCLEXTA [Suspect]
     Active Substance: VENETOCLAX
     Indication: Acute myeloid leukaemia
     Dosage: 10 TO 50
     Route: 048
  2. AZACITIDINE [Concomitant]
     Active Substance: AZACITIDINE
     Indication: Acute myeloid leukaemia
  3. ITRACONAZOLE [Concomitant]
     Active Substance: ITRACONAZOLE
     Indication: Infection prophylaxis
  4. FLUDARABINE PHOSPHATE [Concomitant]
     Active Substance: FLUDARABINE PHOSPHATE
     Indication: Product used for unknown indication
  5. MELPHALAN [Concomitant]
     Active Substance: MELPHALAN
     Indication: Product used for unknown indication
  6. TACROLIMUS [Concomitant]
     Active Substance: TACROLIMUS
     Indication: Product used for unknown indication
  7. MYCOPHENOLATE MOFETIL [Concomitant]
     Active Substance: MYCOPHENOLATE MOFETIL
     Indication: Product used for unknown indication

REACTIONS (3)
  - Device related sepsis [Unknown]
  - Sepsis [Unknown]
  - Decreased appetite [Unknown]
